FAERS Safety Report 5076275-5 (Version None)
Quarter: 2006Q3

REPORT INFORMATION
  Report Type: 
  Country: None (occurrence: None)
  Receive Date: 20060804
  Receipt Date: 20060728
  Transmission Date: 20061208
  Serious: Yes (Hospitalization)
  Sender: FDA-Public Use
  Company Number: AMAN20060008

PATIENT
  Age: 65 Year
  Sex: Female

DRUGS (7)
  1. MANTADIX            (AMANTADINE) [Suspect]
     Indication: HEPATITIS C
     Dosage: 200MG DAILY PO
     Route: 048
     Dates: start: 20051109, end: 20060110
  2. PEGASYS [Suspect]
     Indication: HEPATITIS C
     Dosage: 180 UG WEEKLY INJ
     Dates: start: 20051109, end: 20060110
  3. COPEGUS [Suspect]
     Indication: HEPATITIS C
     Dosage: 800 MG DAILY
     Dates: start: 20051109, end: 20060110
  4. GRANOCYTE (LENOGRASTIME) [Suspect]
     Indication: NEUTROPENIA
     Dosage: WEEKLY
     Dates: start: 20051121, end: 20060110
  5. GRANOCYTE (LENOGRASTIME) [Suspect]
     Indication: PROPHYLAXIS
     Dosage: WEEKLY
     Dates: start: 20051121, end: 20060110
  6. GLYBURIDE [Suspect]
     Dosage: BID PO
     Route: 048
     Dates: start: 20020101
  7. LORAZEPAM [Suspect]
     Dosage: DAILY PO
     Route: 048
     Dates: start: 20051101

REACTIONS (4)
  - ALANINE AMINOTRANSFERASE INCREASED [None]
  - ASPARTATE AMINOTRANSFERASE INCREASED [None]
  - PLATELET COUNT DECREASED [None]
  - PULMONARY SARCOIDOSIS [None]
